FAERS Safety Report 8587241-7 (Version None)
Quarter: 2012Q3

REPORT INFORMATION
  Report Type: 
  Country: None (occurrence: None)
  Receive Date: 20120810
  Receipt Date: 20111003
  Transmission Date: 20120928
  Serious: No
  Sender: FDA-Public Use
  Company Number: US-ASTRAZENECA-2011SE51515

PATIENT
  Age: 57 Year
  Sex: Female
  Weight: 104.3 kg

DRUGS (5)
  1. SYNTHROID [Concomitant]
     Indication: THYROID DISORDER
     Route: 048
     Dates: start: 20090101
  2. ARIMIDEX [Suspect]
     Indication: BREAST CANCER
     Route: 048
     Dates: start: 20100101
  3. ATENOLOL [Concomitant]
     Indication: HYPERTENSION
     Route: 048
     Dates: start: 20090101
  4. LOVIMAX [Concomitant]
     Indication: BLOOD CHOLESTEROL INCREASED
     Route: 048
     Dates: start: 20090101
  5. COUMADIN [Concomitant]
     Indication: ANGIOPATHY
     Route: 048
     Dates: start: 20090101

REACTIONS (2)
  - FIBROMYALGIA [None]
  - ABNORMAL SENSATION IN EYE [None]
